FAERS Safety Report 9527067 (Version 1)
Quarter: 2013Q3

REPORT INFORMATION
  Report Type: Spontaneous
  Country: US (occurrence: US)
  Receive Date: 20130916
  Receipt Date: 20130916
  Transmission Date: 20140515
  Serious: Yes (Other)
  Sender: FDA-Public Use
  Company Number: US-009507513-1309USA004040

PATIENT
  Age: 71 Year
  Sex: Male
  Weight: 74.83 kg

DRUGS (13)
  1. DECADRON [Suspect]
  2. PRILOSEC [Suspect]
     Dosage: 20 MG, BID
     Route: 048
  3. REVLIMID [Suspect]
     Indication: PLASMA CELL MYELOMA
     Dosage: 10 MG, QD
     Route: 048
     Dates: start: 201206
  4. REVLIMID [Suspect]
     Dosage: 10 MG, BID
     Route: 048
     Dates: start: 201209
  5. REVLIMID [Suspect]
     Dosage: 20 MG, FOR 21 DAYS EVERY 28 DAYS
     Route: 048
     Dates: start: 20130115, end: 20130711
  6. ZOMETA [Concomitant]
     Dosage: 4 MG, 4 X PER MONTH
  7. VELCADE [Concomitant]
     Indication: PLASMA CELL MYELOMA
     Dosage: 2 MG, 4 X PER MONTH
  8. ACYCLOVIR [Concomitant]
     Indication: ANTIVIRAL PROPHYLAXIS
     Dosage: 200 MG, 2 QD
     Route: 048
  9. ASPIRIN [Concomitant]
     Dosage: 325 MG, QD
     Route: 048
  10. OXYCONTIN [Concomitant]
     Indication: PAIN
     Dosage: 10 MG, BID
     Route: 048
  11. SENNA S (DOCUSATE SODIUM (+) SENNOSIDES) [Concomitant]
     Indication: LAXATIVE SUPPORTIVE CARE
     Dosage: 8.6-50 MG,1 TAB, 2 IN 1 DAY
     Route: 048
  12. ARTHRO-7 [Concomitant]
     Indication: ARTHRALGIA
     Dosage: 1 DF, BID,2 TAB
     Route: 048
  13. ZOFRAN [Concomitant]
     Dosage: 8 MG, UNK

REACTIONS (27)
  - Acute disseminated encephalomyelitis [Unknown]
  - Affect lability [Not Recovered/Not Resolved]
  - Insomnia [Not Recovered/Not Resolved]
  - Pain in extremity [Not Recovered/Not Resolved]
  - Feeling abnormal [Recovered/Resolved]
  - Disorientation [Recovered/Resolved]
  - Paraproteinaemia [Unknown]
  - Fatigue [Not Recovered/Not Resolved]
  - Neutropenia [Unknown]
  - Prophylactic chemotherapy [Unknown]
  - Constipation [Unknown]
  - Anaemia [Unknown]
  - Nausea [Unknown]
  - Vomiting [Unknown]
  - Nasopharyngitis [Recovered/Resolved]
  - Blood disorder [Unknown]
  - Back pain [Unknown]
  - Dysuria [Unknown]
  - Vertigo [Unknown]
  - Oedema peripheral [Unknown]
  - Herpes zoster [Unknown]
  - Cataract [Unknown]
  - Gastrooesophageal reflux disease [Unknown]
  - Surgery [Unknown]
  - Emotional disorder [Unknown]
  - Hernia repair [Unknown]
  - Tendon operation [Unknown]
